FAERS Safety Report 8435204-4 (Version None)
Quarter: 2012Q2

REPORT INFORMATION
  Report Type: 
  Country: None (occurrence: None)
  Receive Date: 20120614
  Receipt Date: 20120604
  Transmission Date: 20120825
  Serious: Yes (Other)
  Sender: FDA-Public Use
  Company Number: BR-AMGEN-BRASP2012036147

PATIENT
  Age: 46 Year
  Sex: Male
  Weight: 89 kg

DRUGS (5)
  1. VOLTAREN [Concomitant]
     Dosage: UNK
  2. PREDNISOLONE [Concomitant]
     Indication: PAIN
     Dosage: 5 MG, 2X/DAY
  3. ENBREL [Suspect]
     Indication: ANKYLOSING SPONDYLITIS
     Dosage: UNK
     Dates: start: 20080901
  4. AZULFIDINE [Concomitant]
     Dosage: UNK
  5. ENBREL [Suspect]
     Dosage: 50 MG, QWK
     Route: 058

REACTIONS (3)
  - NEOPLASM [None]
  - SPINAL PAIN [None]
  - ARTHRALGIA [None]
